FAERS Safety Report 10168192 (Version 1)
Quarter: 2014Q2

REPORT INFORMATION
  Report Type: Spontaneous
  Country: US (occurrence: US)
  Receive Date: 20140512
  Receipt Date: 20140512
  Transmission Date: 20141212
  Serious: No
  Sender: FDA-Public Use
  Company Number: US-ASTRAZENECA-2013SE81167

PATIENT
  Sex: Female

DRUGS (3)
  1. FASLODEX [Suspect]
     Indication: BREAST CANCER FEMALE
     Route: 030
     Dates: start: 2013
  2. FORTICAL [Suspect]
     Indication: OSTEOPOROSIS
     Route: 055
     Dates: start: 2013
  3. XGEVA [Suspect]
     Indication: BREAST CANCER FEMALE
     Route: 065
     Dates: start: 2013

REACTIONS (3)
  - Sneezing [Unknown]
  - Aspartate aminotransferase increased [Unknown]
  - Alanine aminotransferase increased [Unknown]
